FAERS Safety Report 15803207 (Version 1)
Quarter: 2019Q1

REPORT INFORMATION
  Report Type: Spontaneous
  Country: US (occurrence: US)
  Receive Date: 20190108
  Receipt Date: 20190108
  Transmission Date: 20190417
  Serious: No
  Sender: FDA-Public Use
  Company Number: None

PATIENT

DRUGS (2)
  1. ATORVASTATIN 20MG [Suspect]
     Active Substance: ATORVASTATIN
  2. LOSARTAN 50MG [Suspect]
     Active Substance: LOSARTAN

REACTIONS (3)
  - Product appearance confusion [None]
  - Product shape issue [None]
  - Product colour issue [None]
